FAERS Safety Report 9277267 (Version 1)
Quarter: 2013Q2

REPORT INFORMATION
  Report Type: Spontaneous
  Country: GB (occurrence: GB)
  Receive Date: 20130508
  Receipt Date: 20130508
  Transmission Date: 20140414
  Serious: Yes (Hospitalization, Disabling, Other)
  Sender: FDA-Public Use
  Company Number: GB-009507513-1305GBR001897

PATIENT
  Age: 78 Year
  Sex: Female

DRUGS (1)
  1. FOSAMAX [Suspect]
     Dosage: 70 MG, UNK
     Route: 048
     Dates: end: 20130413

REACTIONS (1)
  - Femoral neck fracture [Unknown]
